FAERS Safety Report 19410670 (Version 4)
Quarter: 2022Q1

REPORT INFORMATION
  Report Type: Report from Study
  Country: DE (occurrence: DE)
  Receive Date: 20210614
  Receipt Date: 20220111
  Transmission Date: 20220423
  Serious: Yes (Hospitalization, Other)
  Sender: FDA-Public Use
  Company Number: DE-ABBVIE-21K-062-3946595-00

PATIENT
  Age: 62 Year
  Sex: Female
  Weight: 43 kg

DRUGS (18)
  1. RINVOQ [Suspect]
     Active Substance: UPADACITINIB
     Indication: Rheumatoid arthritis
     Route: 048
     Dates: start: 20200914, end: 20210518
  2. RINVOQ [Suspect]
     Active Substance: UPADACITINIB
     Indication: Haemolytic anaemia
  3. RINVOQ [Suspect]
     Active Substance: UPADACITINIB
     Indication: Monoclonal B-cell lymphocytosis
  4. METHOTREXATE SODIUM [Suspect]
     Active Substance: METHOTREXATE SODIUM
     Indication: Rheumatoid arthritis
     Route: 058
     Dates: end: 202011
  5. METHOTREXATE SODIUM [Suspect]
     Active Substance: METHOTREXATE SODIUM
     Indication: Rheumatoid arthritis
     Route: 048
     Dates: start: 202012, end: 202105
  6. METHOTREXATE SODIUM [Suspect]
     Active Substance: METHOTREXATE SODIUM
     Route: 048
     Dates: start: 202106
  7. FUROSEMIDE [Concomitant]
     Active Substance: FUROSEMIDE
     Indication: Product used for unknown indication
     Route: 042
  8. PANTOPRAZO [Concomitant]
     Indication: Product used for unknown indication
  9. FRESUBIN [Concomitant]
     Active Substance: AMINO ACIDS\DEXTROSE\ELECTROLYTES NOS\SOYBEAN OIL\VITAMINS
     Indication: Product used for unknown indication
     Dosage: DIETETICS/NUTRITIONAL DRINK
  10. PREDNISOLONE [Concomitant]
     Active Substance: PREDNISOLONE
     Indication: Rheumatoid arthritis
  11. CALCIUM [Concomitant]
     Active Substance: CALCIUM
     Indication: Product used for unknown indication
  12. RISEDRONATE SODIUM [Concomitant]
     Active Substance: RISEDRONATE SODIUM
     Indication: Product used for unknown indication
  13. CHOLECALCIFEROL [Concomitant]
     Active Substance: CHOLECALCIFEROL
     Indication: Product used for unknown indication
  14. MOVICOL [Concomitant]
     Active Substance: POLYETHYLENE GLYCOL 3350\POTASSIUM CHLORIDE\SODIUM BICARBONATE\SODIUM CHLORIDE
     Indication: Product used for unknown indication
  15. FOLIC ACID [Concomitant]
     Active Substance: FOLIC ACID
     Indication: Product used for unknown indication
  16. MUCOFALK [Concomitant]
     Indication: Product used for unknown indication
  17. CHOLECALCIFEROL [Concomitant]
     Active Substance: CHOLECALCIFEROL
     Indication: Product used for unknown indication
     Route: 065
  18. METAMIZOLE [Concomitant]
     Active Substance: METAMIZOLE
     Indication: Product used for unknown indication
     Route: 065

REACTIONS (112)
  - Granular cell tumour [Unknown]
  - Chest X-ray abnormal [Unknown]
  - Deafness neurosensory [Unknown]
  - Splenectomy [Unknown]
  - Reticulocyte count increased [Unknown]
  - Platelet count increased [Unknown]
  - Blood iron decreased [Unknown]
  - Transferrin saturation decreased [Unknown]
  - Serum ferritin increased [Unknown]
  - Transferrin increased [Unknown]
  - Blood pH increased [Recovered/Resolved]
  - Specific gravity urine decreased [Unknown]
  - Red blood cell count decreased [Unknown]
  - Stridor [Unknown]
  - Breath sounds abnormal [Unknown]
  - Joint range of motion decreased [Unknown]
  - Vasculitis [Unknown]
  - Kidney small [Unknown]
  - Pain in extremity [Unknown]
  - Intervertebral disc protrusion [Unknown]
  - Inflammatory marker increased [Unknown]
  - Paraneoplastic syndrome [Unknown]
  - Metabolic disorder [Unknown]
  - Bone marrow disorder [Unknown]
  - Anaemia [Recovered/Resolved]
  - Iron deficiency [Unknown]
  - Vitamin B12 increased [Unknown]
  - General physical health deterioration [Unknown]
  - Dyspnoea exertional [Unknown]
  - Hyperhidrosis [Unknown]
  - Weight decreased [Unknown]
  - Weight gain poor [Unknown]
  - Muscular weakness [Unknown]
  - Gait disturbance [Unknown]
  - Arthralgia [Unknown]
  - Blood folate increased [Unknown]
  - Oedema peripheral [Unknown]
  - Cough [Unknown]
  - Constipation [Unknown]
  - Insomnia [Unknown]
  - Decreased appetite [Unknown]
  - Nutritional condition abnormal [Unknown]
  - Oedema peripheral [Unknown]
  - Muscle strain [Unknown]
  - Finger deformity [Unknown]
  - Haptoglobin increased [Unknown]
  - Arthralgia [Unknown]
  - Aphthous ulcer [Unknown]
  - Sinus pain [Unknown]
  - Neuralgia [Unknown]
  - Hypochromasia [Unknown]
  - Paraneoplastic syndrome [Unknown]
  - Lymphopenia [Unknown]
  - Plasma cells increased [Unknown]
  - Enzyme level increased [Unknown]
  - Osteoarthritis [Unknown]
  - Scoliosis [Unknown]
  - Osteochondrosis [Unknown]
  - Barrett^s oesophagus [Unknown]
  - Gastritis erosive [Unknown]
  - Gastrooesophageal reflux disease [Unknown]
  - Mass [Unknown]
  - Musculoskeletal disorder [Unknown]
  - Pain [Unknown]
  - Infection [Unknown]
  - Muscle atrophy [Unknown]
  - Aortitis [Unknown]
  - Arthritis [Unknown]
  - Colitis [Unknown]
  - Hypertonia [Unknown]
  - Red blood cell sedimentation rate increased [Unknown]
  - Night sweats [Unknown]
  - Rheumatic disorder [Unknown]
  - Red blood cell count increased [Unknown]
  - Haemoglobin decreased [Unknown]
  - Haematocrit decreased [Unknown]
  - Mean cell haemoglobin decreased [Unknown]
  - Mean cell haemoglobin concentration decreased [Unknown]
  - Red cell distribution width increased [Unknown]
  - Mean platelet volume [Unknown]
  - C-reactive protein increased [Unknown]
  - Neutrophil percentage increased [Unknown]
  - Lymphocyte count decreased [Unknown]
  - Myelocyte percentage increased [Unknown]
  - Metamyelocyte count increased [Unknown]
  - Neutrophil count increased [Recovered/Resolved]
  - Monocyte percentage decreased [Recovered/Resolved]
  - Investigation abnormal [Unknown]
  - Blood fibrinogen increased [Unknown]
  - Blood calcium decreased [Unknown]
  - Beta 2 microglobulin [Unknown]
  - Alpha 2 globulin increased [Unknown]
  - Aspartate aminotransferase increased [Unknown]
  - Blood lactate dehydrogenase increased [Unknown]
  - Protein total decreased [Unknown]
  - Blood albumin decreased [Unknown]
  - Haptoglobin increased [Unknown]
  - Red blood cell sedimentation rate increased [Unknown]
  - N-terminal prohormone brain natriuretic peptide increased [Unknown]
  - Haemolytic anaemia [Unknown]
  - Protein total abnormal [Unknown]
  - B-lymphocyte abnormalities [Unknown]
  - Dyspnoea [Unknown]
  - Diffuse large B-cell lymphoma [Unknown]
  - Gait disturbance [Unknown]
  - Paraneoplastic syndrome [Unknown]
  - Monoclonal B-cell lymphocytosis [Unknown]
  - Neutrophil count increased [Unknown]
  - Lymphocyte count decreased [Unknown]
  - Monoclonal B-cell lymphocytosis [Recovered/Resolved]
  - Unevaluable event [Unknown]
  - Fatigue [Unknown]

NARRATIVE: CASE EVENT DATE: 20201201
